FAERS Safety Report 23417851 (Version 4)
Quarter: 2024Q3

REPORT INFORMATION
  Report Type: Spontaneous
  Country: US (occurrence: US)
  Receive Date: 20240118
  Receipt Date: 20240920
  Transmission Date: 20241017
  Serious: No
  Sender: SANOFI AVENTIS
  Company Number: US-SA-SAC20240115000228

PATIENT
  Age: 65 Year
  Sex: Female

DRUGS (1)
  1. DUPIXENT [Suspect]
     Active Substance: DUPILUMAB
     Indication: Dermatitis atopic
     Dosage: 300 MG, QOW
     Route: 058
     Dates: start: 202209

REACTIONS (11)
  - Ocular vascular disorder [Recovering/Resolving]
  - Osteoporosis [Recovering/Resolving]
  - Feeling hot [Recovered/Resolved]
  - Ocular hyperaemia [Recovering/Resolving]
  - Erythema [Recovered/Resolved]
  - Vision blurred [Recovering/Resolving]
  - Injection site rash [Recovering/Resolving]
  - Eye pruritus [Recovering/Resolving]
  - Injection site erythema [Recovering/Resolving]
  - Injection site pruritus [Recovering/Resolving]
  - Rash [Recovered/Resolved]

NARRATIVE: CASE EVENT DATE: 20231201
